FAERS Safety Report 7176260-3 (Version None)
Quarter: 2010Q4

REPORT INFORMATION
  Report Type: 
  Country: None (occurrence: None)
  Receive Date: 20101220
  Receipt Date: 20101209
  Transmission Date: 20110411
  Serious: No
  Sender: FDA-Public Use
  Company Number: US-BIOGENIDEC-2010BI043837

PATIENT
  Sex: Female

DRUGS (2)
  1. TYSABRI [Suspect]
     Indication: MULTIPLE SCLEROSIS
     Route: 042
     Dates: start: 20060908, end: 20070817
  2. TYSABRI [Suspect]
     Route: 042
     Dates: start: 20081114, end: 20091030

REACTIONS (1)
  - MULTIPLE SCLEROSIS [None]
